FAERS Safety Report 7042806-9 (Version None)
Quarter: 2010Q4

REPORT INFORMATION
  Report Type: 
  Country: None (occurrence: None)
  Receive Date: 20101013
  Receipt Date: 20100226
  Transmission Date: 20110411
  Serious: No
  Sender: FDA-Public Use
  Company Number: US-ASTRAZENECA-2010SE00492

PATIENT
  Age: 68 Year
  Sex: Female
  Weight: 88.9 kg

DRUGS (1)
  1. SYMBICORT [Suspect]
     Route: 055

REACTIONS (3)
  - HYPERSENSITIVITY [None]
  - PHOTOPHOBIA [None]
  - RASH [None]
